FAERS Safety Report 18028137 (Version 4)
Quarter: 2022Q4

REPORT INFORMATION
  Report Type: Report from Study
  Country: FR (occurrence: FR)
  Receive Date: 20200716
  Receipt Date: 20221206
  Transmission Date: 20230113
  Serious: Yes (Other)
  Sender: FDA-Public Use
  Company Number: FR-BAXTER-2020BAX014593

PATIENT
  Age: 68 Year
  Sex: Female

DRUGS (3)
  1. DOXORUBICIN HYDROCHLORIDE [Suspect]
     Active Substance: DOXORUBICIN HYDROCHLORIDE
     Indication: Plasma cell myeloma
     Dosage: 1 WEEK/CYCLE (72 MG,1 IN 1 WK)
     Route: 065
     Dates: end: 20171024
  2. VELCADE [Suspect]
     Active Substance: BORTEZOMIB
     Indication: Plasma cell myeloma
     Dosage: 2 WEEKS/CYCLE (2.3 MG,1 IN 0.5 WK)
     Route: 065
     Dates: end: 20171024
  3. DEXAMETHASONE [Suspect]
     Active Substance: DEXAMETHASONE
     Indication: Plasma cell myeloma
     Dosage: 2 WEEK/CYCLE (20 MG,1 IN 0.25 WK)
     Route: 065
     Dates: end: 20171024

REACTIONS (1)
  - Intestinal perforation [Unknown]

NARRATIVE: CASE EVENT DATE: 20171024
